FAERS Safety Report 6978719-8 (Version None)
Quarter: 2010Q3

REPORT INFORMATION
  Report Type: 
  Country: None (occurrence: None)
  Receive Date: 20100913
  Receipt Date: 20100906
  Transmission Date: 20110219
  Serious: Yes (Hospitalization)
  Sender: FDA-Public Use
  Company Number: B0673187A

PATIENT
  Sex: Female

DRUGS (1)
  1. AMOXICILLIN [Suspect]
     Indication: TONSILLITIS
     Dosage: 1G THREE TIMES PER DAY
     Route: 048
     Dates: start: 20100809, end: 20100810

REACTIONS (9)
  - BODY TEMPERATURE INCREASED [None]
  - DERMATITIS [None]
  - HEPATITIS CHOLESTATIC [None]
  - HEPATOCELLULAR INJURY [None]
  - LYMPHOPENIA [None]
  - PRURIGO [None]
  - RASH MORBILLIFORM [None]
  - THROMBOCYTOPENIA [None]
  - TOXIC SKIN ERUPTION [None]
